FAERS Safety Report 15676176 (Version 2)
Quarter: 2018Q4

REPORT INFORMATION
  Report Type: Spontaneous
  Country: RO (occurrence: RO)
  Receive Date: 20181130
  Receipt Date: 20181130
  Transmission Date: 20190205
  Serious: Yes (Other)
  Sender: FDA-Public Use
  Company Number: RO-SA-2018SA222559

PATIENT
  Age: 60 Year
  Sex: Female

DRUGS (1)
  1. LANTUS [Suspect]
     Active Substance: INSULIN GLARGINE
     Indication: TYPE 2 DIABETES MELLITUS
     Dosage: 10 IU, UNK
     Dates: start: 20180626, end: 20180803

REACTIONS (4)
  - Discomfort [Recovered/Resolved]
  - Hypotension [Recovered/Resolved]
  - Asphyxia [Recovered/Resolved]
  - Extrasystoles [Recovered/Resolved]
